FAERS Safety Report 14308079 (Version 6)
Quarter: 2018Q4

REPORT INFORMATION
  Report Type: Spontaneous
  Country: JP (occurrence: JP)
  Receive Date: 20171220
  Receipt Date: 20181227
  Transmission Date: 20190204
  Serious: Yes (Life-Threatening, Hospitalization, Other)
  Sender: FDA-Public Use
  Company Number: JP-BRISTOL-MYERS SQUIBB COMPANY-BMS-2017-105480

PATIENT
  Age: 73 Year
  Sex: Male
  Weight: 63 kg

DRUGS (8)
  1. PREDONINE [Suspect]
     Active Substance: PREDNISOLONE
     Indication: COLITIS ULCERATIVE
     Dosage: 20 MG, BID
     Route: 048
     Dates: start: 20171027, end: 20171101
  2. RECOMODULIN [Suspect]
     Active Substance: THROMBOMODULIN ALFA
     Indication: DISSEMINATED INTRAVASCULAR COAGULATION
     Dosage: 12800 IU
     Route: 041
     Dates: start: 20171111, end: 20171112
  3. PREDONINE [Suspect]
     Active Substance: PREDNISOLONE
     Indication: PRODUCT USED FOR UNKNOWN INDICATION
     Dosage: 15 MG, BID
     Route: 048
     Dates: start: 20171102, end: 20171108
  4. WYSTAL [Suspect]
     Active Substance: CEFOPERAZONE SODIUM\SULBACTAM SODIUM
     Indication: DISSEMINATED INTRAVASCULAR COAGULATION
     Dosage: UNK
     Route: 065
     Dates: start: 20171111
  5. RECOMODULIN [Suspect]
     Active Substance: THROMBOMODULIN ALFA
     Indication: DISSEMINATED INTRAVASCULAR COAGULATION
     Route: 065
  6. CALONAL [Suspect]
     Active Substance: ACETAMINOPHEN
     Indication: PRODUCT USED FOR UNKNOWN INDICATION
     Dosage: UNK
     Route: 065
  7. CALONAL [Suspect]
     Active Substance: ACETAMINOPHEN
     Indication: PRODUCT USED FOR UNKNOWN INDICATION
     Dosage: UNK
     Route: 065
  8. OPDIVO [Suspect]
     Active Substance: NIVOLUMAB
     Indication: METASTATIC RENAL CELL CARCINOMA
     Dosage: 3 MG/KG, Q2WK
     Route: 041
     Dates: start: 20170630, end: 20170929

REACTIONS (17)
  - Urticaria [Recovering/Resolving]
  - Cholelithiasis [Unknown]
  - Gastrointestinal haemorrhage [Unknown]
  - Colitis ulcerative [Recovered/Resolved]
  - Diverticulum [Unknown]
  - Nasal congestion [Unknown]
  - Faeces discoloured [Unknown]
  - Haemoglobin decreased [Unknown]
  - Acute kidney injury [Recovered/Resolved]
  - Disseminated intravascular coagulation [Recovered/Resolved]
  - Gastroduodenal ulcer [Unknown]
  - Vasculitis [Recovering/Resolving]
  - Stevens-Johnson syndrome [Unknown]
  - Myasthenia gravis [Recovering/Resolving]
  - Myositis [Recovering/Resolving]
  - Rhabdomyolysis [Unknown]
  - Pulmonary congestion [Unknown]

NARRATIVE: CASE EVENT DATE: 20170904
